FAERS Safety Report 25537484 (Version 1)
Quarter: 2025Q3

REPORT INFORMATION
  Report Type: Other
  Country: EU (occurrence: None)
  Receive Date: 20250710
  Receipt Date: 20250710
  Transmission Date: 20251020
  Serious: Yes (Hospitalization, Other)
  Sender: SQUARE PHARMACEUTICALS
  Company Number: EU-Square Pharmaceuticals PLC-000069

PATIENT
  Age: 84 Year
  Sex: Male

DRUGS (1)
  1. MIRTAZAPINE [Suspect]
     Active Substance: MIRTAZAPINE
     Indication: Product used for unknown indication

REACTIONS (4)
  - Coma [Recovered/Resolved]
  - Accidental exposure to product [Unknown]
  - Hypercapnia [Recovered/Resolved]
  - Acidosis [Recovered/Resolved]
